FAERS Safety Report 5386637-4 (Version None)
Quarter: 2007Q3

REPORT INFORMATION
  Report Type: 
  Country: None (occurrence: None)
  Receive Date: 20070713
  Receipt Date: 20070711
  Transmission Date: 20080115
  Serious: Yes (Hospitalization)
  Sender: FDA-Public Use
  Company Number: US-BAYER-200712171BWH

PATIENT
  Sex: Male
  Weight: 76 kg

DRUGS (1)
  1. CIPRO [Suspect]
     Indication: DIARRHOEA
     Dates: start: 20070526

REACTIONS (6)
  - BLOOD POTASSIUM DECREASED [None]
  - COLITIS ULCERATIVE [None]
  - COLONIC OBSTRUCTION [None]
  - DIARRHOEA [None]
  - PYREXIA [None]
  - WEIGHT DECREASED [None]
